FAERS Safety Report 17313980 (Version 1)
Quarter: 2020Q1

REPORT INFORMATION
  Report Type: Report from Study
  Country: CA (occurrence: CA)
  Receive Date: 20200124
  Receipt Date: 20200124
  Transmission Date: 20200409
  Serious: Yes (Hospitalization)
  Sender: FDA-Public Use
  Company Number: CA-BRISTOL-MYERS SQUIBB COMPANY-BMS-2020-004159

PATIENT
  Age: 72 Year
  Sex: Male

DRUGS (1)
  1. NIVOLUMAB [Suspect]
     Active Substance: NIVOLUMAB
     Indication: SQUAMOUS CELL CARCINOMA OF HEAD AND NECK
     Dosage: 138 MILLIGRAM, Q2WK
     Route: 042

REACTIONS (3)
  - Inflammation [Not Recovered/Not Resolved]
  - Tumour exudation [Unknown]
  - Diarrhoea [Unknown]

NARRATIVE: CASE EVENT DATE: 20200112
